FAERS Safety Report 12555477 (Version 1)
Quarter: 2016Q3

REPORT INFORMATION
  Report Type: Spontaneous
  Country: None (occurrence: None)
  Receive Date: 20160713
  Receipt Date: 20160713
  Transmission Date: 20161109
  Serious: Yes (Other)
  Sender: FDA-Public Use
  Company Number: None

PATIENT
  Age: 25 Year
  Sex: Female

DRUGS (1)
  1. RIBAVIRIN (RIBAVIRIN) TABLET [Suspect]
     Active Substance: RIBAVIRIN
     Indication: HEPATITIS C
     Route: 048
     Dates: start: 20150519, end: 20150801

REACTIONS (2)
  - Ultrasound antenatal screen abnormal [None]
  - Urinary tract infection [None]

NARRATIVE: CASE EVENT DATE: 20160123
